FAERS Safety Report 12687462 (Version 1)
Quarter: 2016Q3

REPORT INFORMATION
  Report Type: Spontaneous
  Country: US (occurrence: US)
  Receive Date: 20160825
  Receipt Date: 20160825
  Transmission Date: 20161109
  Serious: No
  Sender: FDA-Public Use
  Company Number: US-GALDERMA-US15007213

PATIENT
  Age: 60 Year
  Sex: Female
  Weight: 68 kg

DRUGS (1)
  1. CLOBETASOL PROPIONATE (CLOBETASOL PROPIONATE) LOTION, 0.05% [Suspect]
     Active Substance: CLOBETASOL PROPIONATE
     Indication: ALOPECIA
     Dosage: 0.05%
     Route: 061
     Dates: start: 201509, end: 201509

REACTIONS (5)
  - Pain of skin [Recovered/Resolved]
  - Application site erythema [Recovered/Resolved]
  - Product use issue [Recovered/Resolved]
  - Pruritus [Recovered/Resolved]
  - Skin discomfort [Recovered/Resolved]

NARRATIVE: CASE EVENT DATE: 201509
